FAERS Safety Report 15007628 (Version 2)
Quarter: 2018Q2

REPORT INFORMATION
  Report Type: Report from Study
  Country: US (occurrence: US)
  Receive Date: 20180613
  Receipt Date: 20180629
  Transmission Date: 20180711
  Serious: Yes (Hospitalization)
  Sender: FDA-Public Use
  Company Number: US-PFIZER INC-2018226739

PATIENT
  Age: 15 Year
  Sex: Female
  Weight: 60.65 kg

DRUGS (6)
  1. PEGFILGRASTIM [Suspect]
     Active Substance: PEGFILGRASTIM
     Indication: BLOOD COUNT ABNORMAL
     Dosage: 6 MG, ONCE
     Route: 058
     Dates: start: 20180513, end: 20180513
  2. TALAZOPARIB [Suspect]
     Active Substance: TALAZOPARIB
     Indication: EWING^S SARCOMA
     Dosage: 1000 MG, DAILY X 6 EVERY 3 WEEKS
     Route: 048
     Dates: start: 20180507
  3. IRINOTECAN HCL [Suspect]
     Active Substance: IRINOTECAN HYDROCHLORIDE
     Indication: EWING^S SARCOMA
     Dosage: 64 MG, DAILY X 5 (DAYS 2-6 OF EACH CYCLE) EVERY 21 DAYS
     Route: 042
     Dates: start: 20180508
  4. SEPTRA [Concomitant]
     Active Substance: SULFAMETHOXAZOLE\TRIMETHOPRIM
     Indication: ANTIFUNGAL PROPHYLAXIS
     Dosage: 1 TAB, BID MTW
  5. CEFIXIME. [Concomitant]
     Active Substance: CEFIXIME
     Indication: PROPHYLAXIS AGAINST DIARRHOEA
  6. TEMODAR [Suspect]
     Active Substance: TEMOZOLOMIDE
     Indication: EWING^S SARCOMA
     Dosage: 25 MG, DAILY X 5 (DAYS 2-6 OF EACH CYCLE) EVERY 21 DAYS
     Route: 048
     Dates: start: 20180508

REACTIONS (2)
  - Febrile neutropenia [Recovering/Resolving]
  - Hypersensitivity [Recovered/Resolved]

NARRATIVE: CASE EVENT DATE: 20180518
